FAERS Safety Report 6871920-3 (Version None)
Quarter: 2010Q3

REPORT INFORMATION
  Report Type: 
  Country: None (occurrence: None)
  Receive Date: 20100723
  Receipt Date: 20100716
  Transmission Date: 20110219
  Serious: Yes (Other)
  Sender: FDA-Public Use
  Company Number: GB-JNJFOC-20100705571

PATIENT
  Sex: Female

DRUGS (1)
  1. TOPAMAX [Suspect]
     Indication: PRODUCT USED FOR UNKNOWN INDICATION
     Route: 065

REACTIONS (7)
  - ANAL INFLAMMATION [None]
  - CANDIDIASIS [None]
  - GENITAL HERPES [None]
  - MASS [None]
  - THERAPY CESSATION [None]
  - VAGINAL MUCOSAL BLISTERING [None]
  - VAGINAL SWELLING [None]
